FAERS Safety Report 13988242 (Version 1)
Quarter: 2017Q3

REPORT INFORMATION
  Report Type: Spontaneous
  Country: FR (occurrence: FR)
  Receive Date: 20170919
  Receipt Date: 20170919
  Transmission Date: 20171128
  Serious: Yes (Disabling)
  Sender: FDA-Public Use
  Company Number: PHHY2017FR135368

PATIENT
  Age: 76 Year
  Sex: Female

DRUGS (1)
  1. EXFORGE [Suspect]
     Active Substance: AMLODIPINE BESYLATE\VALSARTAN
     Indication: HYPERTENSION
     Dosage: 1 DF, QD (VAL 160 MG/AMLO 5 MG))
     Route: 048
     Dates: start: 20151029, end: 20170620

REACTIONS (2)
  - Headache [Recovering/Resolving]
  - Deafness transitory [Recovered/Resolved]

NARRATIVE: CASE EVENT DATE: 20160101
